FAERS Safety Report 13737608 (Version 1)
Quarter: 2017Q3

REPORT INFORMATION
  Report Type: Spontaneous
  Country: US (occurrence: US)
  Receive Date: 20170710
  Receipt Date: 20170710
  Transmission Date: 20171127
  Serious: No
  Sender: FDA-Public Use
  Company Number: US-SAOL THERAPEUTICS-2016SAO01124

PATIENT
  Age: 57 Year
  Sex: Female
  Weight: 50.79 kg

DRUGS (11)
  1. LIORESAL [Suspect]
     Active Substance: BACLOFEN
     Indication: MUSCLE SPASTICITY
  2. LIORESAL [Suspect]
     Active Substance: BACLOFEN
     Indication: DYSTONIA
  3. DILAUDID [Suspect]
     Active Substance: HYDROMORPHONE HYDROCHLORIDE
     Dosage: 3.434 MG, \DAY
     Route: 037
  4. ALPRAZOLAM. [Concomitant]
     Active Substance: ALPRAZOLAM
  5. LIORESAL [Suspect]
     Active Substance: BACLOFEN
     Indication: COMPLEX REGIONAL PAIN SYNDROME
  6. CLONIDINE. [Concomitant]
     Active Substance: CLONIDINE
  7. LIORESAL [Suspect]
     Active Substance: BACLOFEN
     Indication: PAIN
     Dosage: 286.2 ?G, \DAY
     Route: 037
  8. RELISTOR [Concomitant]
     Active Substance: METHYLNALTREXONE BROMIDE
  9. CARISOPRODOL. [Concomitant]
     Active Substance: CARISOPRODOL
  10. OXYCODONE [Concomitant]
     Active Substance: OXYCODONE
  11. NEXIUM [Concomitant]
     Active Substance: ESOMEPRAZOLE MAGNESIUM

REACTIONS (7)
  - Hypoaesthesia [Not Recovered/Not Resolved]
  - Balance disorder [Not Recovered/Not Resolved]
  - Device infusion issue [Unknown]
  - Pain [Not Recovered/Not Resolved]
  - Paraesthesia [Not Recovered/Not Resolved]
  - Fall [Not Recovered/Not Resolved]
  - Urinary incontinence [Not Recovered/Not Resolved]

NARRATIVE: CASE EVENT DATE: 2016
